FAERS Safety Report 11513274 (Version 1)
Quarter: 2015Q3

REPORT INFORMATION
  Report Type: Spontaneous
  Country: US (occurrence: US)
  Receive Date: 20150903
  Receipt Date: 20150903
  Transmission Date: 20151125
  Serious: No
  Sender: FDA-Public Use
  Company Number: US-ELI_LILLY_AND_COMPANY-US201209005819

PATIENT
  Age: 59 Year
  Sex: Female

DRUGS (2)
  1. CYMBALTA [Suspect]
     Active Substance: DULOXETINE HYDROCHLORIDE
     Indication: DEPRESSION
     Dosage: 90 MG, QD
     Dates: start: 2008
  2. AMANTADINE [Concomitant]
     Active Substance: AMANTADINE

REACTIONS (4)
  - Speech disorder [Unknown]
  - Parkinson^s disease [Unknown]
  - Erythema [Unknown]
  - Oedema peripheral [Unknown]
